FAERS Safety Report 4606969-4 (Version None)
Quarter: 2005Q1

REPORT INFORMATION
  Report Type: 
  Country: None (occurrence: None)
  Receive Date: 20050309
  Receipt Date: 20050224
  Transmission Date: 20050727
  Serious: Yes (Hospitalization, Other)
  Sender: FDA-Public Use
  Company Number: 2005037320

PATIENT
  Age: 48 Year
  Sex: Male
  Weight: 162.3877 kg

DRUGS (8)
  1. BEXTRA [Suspect]
     Indication: ARTHRITIS
     Dosage: 20 MG (20 MG, 1 IN 1 D), ORAL
     Route: 048
     Dates: start: 20010401
  2. OLMESARTAN MEDOXOMIL (OLMESARTAN MEDOXOMIL) [Concomitant]
  3. METOPROLOL TARTRATE [Concomitant]
  4. ATORVASTATIN CALCIUM [Concomitant]
  5. FENOFIBRATE [Concomitant]
  6. POTASSIUM ACETATE [Concomitant]
  7. DIPHENHYDRAMINE HCL [Concomitant]
  8. SIMVASTATIN [Concomitant]

REACTIONS (4)
  - ATRIAL FIBRILLATION [None]
  - CARDIAC FAILURE CONGESTIVE [None]
  - PULMONARY OEDEMA [None]
  - SLEEP APNOEA SYNDROME [None]
